FAERS Safety Report 13827152 (Version 1)
Quarter: 2017Q3

REPORT INFORMATION
  Report Type: Spontaneous
  Country: US (occurrence: US)
  Receive Date: 20170802
  Receipt Date: 20170802
  Transmission Date: 20171127
  Serious: No
  Sender: FDA-Public Use
  Company Number: US-ROCHE-674224

PATIENT
  Sex: Female
  Weight: 88.6 kg

DRUGS (1)
  1. BONIVA [Suspect]
     Active Substance: IBANDRONATE SODIUM
     Indication: BREAST CANCER
     Route: 048

REACTIONS (1)
  - Dysphagia [Not Recovered/Not Resolved]
